FAERS Safety Report 9812374 (Version 1)
Quarter: 2014Q1

REPORT INFORMATION
  Report Type: Spontaneous
  Country: GB (occurrence: GB)
  Receive Date: 20140113
  Receipt Date: 20140113
  Transmission Date: 20141002
  Serious: Yes (Hospitalization)
  Sender: FDA-Public Use
  Company Number: GB-ROCHE-1330887

PATIENT
  Age: 23 Year
  Sex: Female

DRUGS (1)
  1. NAPROXEN [Suspect]
     Indication: BACK PAIN
     Route: 048
     Dates: start: 20131120, end: 20131123

REACTIONS (6)
  - Hypersensitivity [Recovering/Resolving]
  - Eye swelling [Recovering/Resolving]
  - Swelling face [Recovering/Resolving]
  - Swelling [Recovering/Resolving]
  - Swollen tongue [Recovering/Resolving]
  - Rash generalised [Recovering/Resolving]
